FAERS Safety Report 8049772-8 (Version None)
Quarter: 2012Q1

REPORT INFORMATION
  Report Type: 
  Country: None (occurrence: None)
  Receive Date: 20120117
  Receipt Date: 20120109
  Transmission Date: 20120608
  Serious: Yes (Other)
  Sender: FDA-Public Use
  Company Number: US-BAYER-2011-038693

PATIENT
  Sex: Female

DRUGS (5)
  1. NEXIUM [Concomitant]
  2. NAPROXEN [Concomitant]
  3. HYOSCYAMINE [Concomitant]
  4. YASMIN [Suspect]
     Dosage: UNK
     Dates: start: 20040101, end: 20050101
  5. RANITIDINE [Concomitant]

REACTIONS (5)
  - ANXIETY [None]
  - ANHEDONIA [None]
  - BILIARY DYSKINESIA [None]
  - GALLBLADDER INJURY [None]
  - PAIN [None]
